FAERS Safety Report 5627070-7 (Version None)
Quarter: 2008Q1

REPORT INFORMATION
  Report Type: 
  Country: None (occurrence: None)
  Receive Date: 20080116
  Receipt Date: 20070618
  Transmission Date: 20080703
  Serious: Yes (Other)
  Sender: FDA-Public Use
  Company Number: PHEH2007US08932

PATIENT
  Sex: Male

DRUGS (1)
  1. LIORESAL [Suspect]

REACTIONS (2)
  - HALLUCINATION [None]
  - MENTAL IMPAIRMENT [None]
